FAERS Safety Report 7239644-0 (Version None)
Quarter: 2011Q1

REPORT INFORMATION
  Report Type: 
  Country: None (occurrence: None)
  Receive Date: 20110122
  Receipt Date: 20101006
  Transmission Date: 20110831
  Serious: No
  Sender: FDA-Public Use
  Company Number: US-ALLERGAN-1012859US

PATIENT
  Age: 50 Year
  Sex: Female

DRUGS (2)
  1. HORMONE PATCH [Concomitant]
  2. LATISSE [Suspect]
     Indication: GROWTH OF EYELASHES
     Dosage: 1 GTT, QHS
     Route: 061
     Dates: start: 20100201, end: 20101004

REACTIONS (4)
  - SKIN IRRITATION [None]
  - ERYTHEMA [None]
  - SKIN FISSURES [None]
  - DRY SKIN [None]
